FAERS Safety Report 14055668 (Version 2)
Quarter: 2017Q4

REPORT INFORMATION
  Report Type: Report from Study
  Country: TN (occurrence: TN)
  Receive Date: 20171006
  Receipt Date: 20171018
  Transmission Date: 20180321
  Serious: Yes (Hospitalization)
  Sender: FDA-Public Use
  Company Number: TN-ROCHE-1350807

PATIENT
  Age: 37 Year
  Sex: Female
  Weight: 60 kg

DRUGS (34)
  1. OCRELIZUMAB. [Suspect]
     Active Substance: OCRELIZUMAB
     Indication: RELAPSING-REMITTING MULTIPLE SCLEROSIS
     Dosage: OLE WEEK 0
     Route: 042
     Dates: start: 20140606, end: 20140606
  2. OCRELIZUMAB. [Suspect]
     Active Substance: OCRELIZUMAB
     Dosage: OLE WEEK2
     Route: 042
     Dates: start: 20140620, end: 20140620
  3. OCRELIZUMAB. [Suspect]
     Active Substance: OCRELIZUMAB
     Dosage: OLE WEEK 96
     Route: 042
     Dates: start: 20160412, end: 20160412
  4. OCRELIZUMAB. [Suspect]
     Active Substance: OCRELIZUMAB
     Dosage: OLE WEEK 168
     Route: 042
     Dates: start: 20170915, end: 20170915
  5. METHYLPREDNISOLONE. [Concomitant]
     Active Substance: METHYLPREDNISOLONE
     Route: 065
     Dates: start: 20170815, end: 20170915
  6. FURADOINE [Concomitant]
     Active Substance: NITROFURANTOIN
     Route: 065
     Dates: start: 20160923, end: 20161223
  7. OCRELIZUMAB. [Suspect]
     Active Substance: OCRELIZUMAB
     Dosage: OLE WEEK 144
     Route: 042
     Dates: start: 20170404, end: 20170404
  8. CEFIXIME. [Concomitant]
     Active Substance: CEFIXIME
     Route: 065
     Dates: start: 20151020, end: 20151030
  9. PLACEBO [Suspect]
     Active Substance: UNSPECIFIED INGREDIENT
     Dosage: DATE OF LAST DOSE PRIOR TO SAE:  21/NOV/2013.?ADMINISTERED AS DUAL INFUSIONS GIVEN ON DAYS 1 AND 15
     Route: 042
     Dates: start: 20120720, end: 20120720
  10. INTERFERON BETA-1A [Suspect]
     Active Substance: INTERFERON BETA-1A
     Dosage: FOR WEEKS 3 AND 4: 22 MICROGRAM INJECTION 3 TIMES PER WEEK;?FOR THE 5TH WEEK: 44 MICROGRAM INJECTION
     Route: 058
  11. OCRELIZUMAB. [Suspect]
     Active Substance: OCRELIZUMAB
     Dosage: OLE WEEK 24
     Route: 042
     Dates: start: 20141125, end: 20141125
  12. METHYLPREDNISOLONE. [Concomitant]
     Active Substance: METHYLPREDNISOLONE
     Indication: PREMEDICATION
     Dosage: 20/JUL/2012, 21/DEC/2012, 07/JUN/2013, 21/NOV/2013, 06/JUN/2014, 20/JUN/2014, 25/NOV/2014, 26/MAY/20
     Route: 065
     Dates: start: 20120706
  13. CEFIXIME. [Concomitant]
     Active Substance: CEFIXIME
     Route: 065
     Dates: start: 20160328, end: 20160404
  14. CEFOTAXIME [Concomitant]
     Active Substance: CEFOTAXIME SODIUM
     Route: 065
     Dates: start: 20160303
  15. OFLOCET [Concomitant]
     Active Substance: OFLOXACIN
     Route: 065
     Dates: start: 20160913, end: 20160921
  16. FUMAFER [Concomitant]
     Active Substance: FERROUS FUMARATE
     Route: 065
     Dates: start: 20130416
  17. OCRELIZUMAB. [Suspect]
     Active Substance: OCRELIZUMAB
     Dosage: OLE WEEK 48
     Route: 042
     Dates: start: 20150526, end: 20150526
  18. METHYLPREDNISOLONE. [Concomitant]
     Active Substance: METHYLPREDNISOLONE
     Route: 065
     Dates: start: 20160306, end: 20160310
  19. PARACETAMOL [Concomitant]
     Active Substance: ACETAMINOPHEN
     Route: 065
     Dates: start: 20150720, end: 20150727
  20. OROKEN [Concomitant]
     Active Substance: CEFIXIME
     Route: 065
     Dates: start: 20161228, end: 20170105
  21. FLUCONAZOLE. [Concomitant]
     Active Substance: FLUCONAZOLE
     Route: 065
     Dates: start: 20161203
  22. PLACEBO [Suspect]
     Active Substance: UNSPECIFIED INGREDIENT
     Indication: RELAPSING-REMITTING MULTIPLE SCLEROSIS
     Dosage: DATE OF LAST DOSE PRIOR TO SAE:  21/NOV/2013.?ADMINISTERED AS DUAL INFUSIONS GIVEN ON DAYS 1 AND 15
     Route: 042
     Dates: start: 20120706, end: 20120706
  23. PLACEBO [Suspect]
     Active Substance: UNSPECIFIED INGREDIENT
     Dosage: DATE OF LAST DOSE PRIOR TO SAE:  21/NOV/2013.?ADMINISTERED AS DUAL INFUSIONS GIVEN ON DAYS 1 AND 15
     Route: 042
     Dates: start: 20131121, end: 20131121
  24. INTERFERON BETA-1A [Suspect]
     Active Substance: INTERFERON BETA-1A
     Indication: RELAPSING-REMITTING MULTIPLE SCLEROSIS
     Dosage: FOR WEEK 1 AND 2.?DATE OF LAST DOSE PRIOR TO SAE WAS 31/JAN/2014
     Route: 058
     Dates: start: 20120706
  25. METHYLPREDNISOLONE. [Concomitant]
     Active Substance: METHYLPREDNISOLONE
     Route: 065
     Dates: start: 20170304, end: 20170404
  26. LEVONORGESTREL. [Concomitant]
     Active Substance: LEVONORGESTREL
     Route: 065
     Dates: start: 20120620
  27. MONURIL [Concomitant]
     Active Substance: FOSFOMYCIN SODIUM
     Route: 065
     Dates: start: 20160922, end: 20160922
  28. FLUCONAZOLE. [Concomitant]
     Active Substance: FLUCONAZOLE
     Route: 065
     Dates: start: 20161126, end: 20161202
  29. OCRELIZUMAB. [Suspect]
     Active Substance: OCRELIZUMAB
     Dosage: OLE WEEK 72
     Route: 042
     Dates: start: 20151110, end: 20151110
  30. COLCHICINE. [Concomitant]
     Active Substance: COLCHICINE
     Route: 065
     Dates: start: 20150720, end: 20150727
  31. SULFAMETHOXAZOLE [Concomitant]
     Active Substance: SULFAMETHOXAZOLE
     Route: 065
     Dates: start: 20161215, end: 20161228
  32. CIPROFLOXACINE [Concomitant]
     Active Substance: CIPROFLOXACIN
     Route: 065
     Dates: start: 20170708, end: 20170712
  33. PLACEBO [Suspect]
     Active Substance: UNSPECIFIED INGREDIENT
     Dosage: DATE OF LAST DOSE PRIOR TO SAE:  21/NOV/2013.?ADMINISTERED AS DUAL INFUSIONS GIVEN ON DAYS 1 AND 15
     Route: 042
     Dates: start: 20121221, end: 20121221
  34. PLACEBO [Suspect]
     Active Substance: UNSPECIFIED INGREDIENT
     Dosage: DATE OF LAST DOSE PRIOR TO SAE:  21/NOV/2013.?ADMINISTERED AS DUAL INFUSIONS GIVEN ON DAYS 1 AND 15
     Route: 042
     Dates: start: 20130607, end: 20130607

REACTIONS (2)
  - Urinary tract infection [Recovered/Resolved]
  - Urinary tract infection [Recovered/Resolved]

NARRATIVE: CASE EVENT DATE: 20140203
